FAERS Safety Report 8845590 (Version 2)
Quarter: 2012Q4

REPORT INFORMATION
  Report Type: 
  Country: JP (occurrence: JP)
  Receive Date: 20121017
  Receipt Date: 20121030
  Transmission Date: 20130627
  Serious: Yes (Other)
  Sender: FDA-Public Use
  Company Number: JP-BAXTER-2012BAX020298

PATIENT
  Age: 67 Year
  Sex: Female

DRUGS (4)
  1. ENDOXAN 2000 MG, LYOPHILISAT POUR SOLUTION INJECTABLE [Suspect]
     Indication: MALIGNANT LYMPHOMA
     Route: 065
     Dates: start: 200306, end: 200312
  2. HYDROXYDAUNORUBICIN [Suspect]
     Indication: MALIGNANT LYMPHOMA
     Route: 065
     Dates: start: 200306, end: 200312
  3. VINCRISTINE [Suspect]
     Indication: MALIGNANT LYMPHOMA
     Route: 065
     Dates: start: 200306, end: 200312
  4. PREDNISOLONE [Suspect]
     Indication: MALIGNANT LYMPHOMA
     Route: 065
     Dates: start: 200306, end: 200312

REACTIONS (1)
  - Gastric cancer [Recovered/Resolved]
